FAERS Safety Report 9163729 (Version 1)
Quarter: 2013Q1

REPORT INFORMATION
  Report Type: Spontaneous
  Country: US (occurrence: US)
  Receive Date: 20130314
  Receipt Date: 20130314
  Transmission Date: 20140127
  Serious: No
  Sender: FDA-Public Use
  Company Number: US-FOUGERA-2013FO000030

PATIENT
  Age: 86 Year
  Sex: Male
  Weight: 90.72 kg

DRUGS (5)
  1. IMIQUIMOD [Suspect]
     Indication: ACTINIC KERATOSIS
     Route: 061
     Dates: start: 20130125, end: 20130129
  2. SIMVASTATIN [Concomitant]
     Indication: BLOOD CHOLESTEROL ABNORMAL
     Route: 048
  3. BABY ASPIRIN [Concomitant]
     Indication: BLOOD PRESSURE ABNORMAL
     Route: 048
  4. LOSARTAN [Concomitant]
     Indication: BLOOD PRESSURE ABNORMAL
     Route: 048
  5. ANTIHYPERTENSIVES [Concomitant]
     Indication: BLOOD PRESSURE ABNORMAL

REACTIONS (7)
  - Application site discomfort [Not Recovered/Not Resolved]
  - Application site inflammation [Not Recovered/Not Resolved]
  - Application site pain [Not Recovered/Not Resolved]
  - Sleep disorder [Not Recovered/Not Resolved]
  - Application site scab [Not Recovered/Not Resolved]
  - Inappropriate schedule of drug administration [Recovered/Resolved]
  - Drug administered at inappropriate site [Recovered/Resolved]
